FAERS Safety Report 18832623 (Version 4)
Quarter: 2021Q2

REPORT INFORMATION
  Report Type: Report from Study
  Country: US (occurrence: US)
  Receive Date: 20210201
  Receipt Date: 20210423
  Transmission Date: 20210717
  Serious: Yes (Hospitalization)
  Sender: FDA-Public Use
  Company Number: US-SEATTLE GENETICS-2020SGN04326

PATIENT
  Age: 68 Year
  Sex: Female

DRUGS (4)
  1. XELODA [Concomitant]
     Active Substance: CAPECITABINE
     Dosage: DAILY FOR 2 WEEKS
  2. TUCATINIB [Suspect]
     Active Substance: TUCATINIB
     Dosage: 150 MG
     Route: 048
  3. TUCATINIB [Suspect]
     Active Substance: TUCATINIB
     Indication: PRODUCT USED FOR UNKNOWN INDICATION
     Dosage: 600 MG, BID
     Route: 048
     Dates: start: 202008
  4. HERCEPTIN [Concomitant]
     Active Substance: TRASTUZUMAB
     Dosage: UNK, Q3WEEKS

REACTIONS (16)
  - Malaise [Unknown]
  - Diarrhoea [Not Recovered/Not Resolved]
  - Eructation [Unknown]
  - Dyspnoea [Not Recovered/Not Resolved]
  - Skin discolouration [Unknown]
  - Skin fissures [Unknown]
  - Diarrhoea haemorrhagic [Unknown]
  - Drug ineffective [Unknown]
  - Dyspepsia [Not Recovered/Not Resolved]
  - Constipation [Not Recovered/Not Resolved]
  - Hiccups [Unknown]
  - Gastrointestinal disorder [Unknown]
  - Haemorrhoids [Unknown]
  - Adverse drug reaction [Unknown]
  - Hospitalisation [Unknown]
  - Chest pain [Unknown]

NARRATIVE: CASE EVENT DATE: 202008
